FAERS Safety Report 6743476-7 (Version None)
Quarter: 2010Q2

REPORT INFORMATION
  Report Type: 
  Country: None (occurrence: None)
  Receive Date: 20100525
  Receipt Date: 20100506
  Transmission Date: 20101027
  Serious: Yes (Other)
  Sender: FDA-Public Use
  Company Number: 2010SP025701

PATIENT
  Age: 48 Year
  Sex: Female

DRUGS (2)
  1. DESLORATADINE [Suspect]
     Indication: NASAL CONGESTION
     Dosage: 5 MG;
     Dates: start: 20100425, end: 20100425
  2. NIMED [Concomitant]

REACTIONS (3)
  - EYE SWELLING [None]
  - SWELLING FACE [None]
  - TABLET ISSUE [None]
